FAERS Safety Report 17269777 (Version 1)
Quarter: 2020Q1

REPORT INFORMATION
  Report Type: Spontaneous
  Country: FR (occurrence: FR)
  Receive Date: 20200114
  Receipt Date: 20200114
  Transmission Date: 20200409
  Serious: Yes (Hospitalization)
  Sender: FDA-Public Use
  Company Number: FR-009507513-2001FRA001513

PATIENT
  Age: 18 Year
  Sex: Male
  Weight: 45 kg

DRUGS (9)
  1. SINGULAIR [Concomitant]
     Active Substance: MONTELUKAST SODIUM
     Indication: RESPIRATORY DISTRESS
     Dosage: UNK
     Dates: start: 20190526
  2. ATROVENT [Concomitant]
     Active Substance: IPRATROPIUM BROMIDE
     Dosage: UNK
  3. ALEPSAL (CAFFEINE (+) PHENOBARBITAL) [Concomitant]
     Active Substance: CAFFEINE\PHENOBARBITAL
     Dosage: UNK
  4. URBANYL [Concomitant]
     Active Substance: CLOBAZAM
     Dosage: UNK
  5. VENTOLINE (ALBUTEROL SULFATE) [Concomitant]
     Active Substance: ALBUTEROL SULFATE
     Dosage: UNK
  6. MICROPAKINE [Concomitant]
     Active Substance: VALPROATE SODIUM
     Dosage: UNK
  7. IMIPENEM AND CILASTATIN [Suspect]
     Active Substance: CILASTATIN SODIUM\IMIPENEM
     Indication: KLEBSIELLA BACTERAEMIA
     Dosage: 1 GRAM, Q6H
     Route: 041
     Dates: start: 20190526, end: 20190531
  8. PULMICORT TURBUHALER [Concomitant]
     Active Substance: BUDESONIDE
     Dosage: UNK
  9. FYCOMPA [Concomitant]
     Active Substance: PERAMPANEL
     Dosage: UNK

REACTIONS (2)
  - Condition aggravated [Recovered/Resolved]
  - Seizure [Not Recovered/Not Resolved]

NARRATIVE: CASE EVENT DATE: 20190528
